FAERS Safety Report 5462530-3 (Version None)
Quarter: 2007Q3

REPORT INFORMATION
  Report Type: 
  Country: None (occurrence: None)
  Receive Date: 20070920
  Receipt Date: 20070129
  Transmission Date: 20080115
  Serious: No
  Sender: FDA-Public Use
  Company Number: A0637141A

PATIENT
  Age: 35 Year
  Sex: Female

DRUGS (1)
  1. ABREVA [Suspect]
     Route: 061
     Dates: start: 20070123, end: 20070125

REACTIONS (3)
  - APPLICATION SITE EXCORIATION [None]
  - DRUG EXPOSURE DURING PREGNANCY [None]
  - INTENTIONAL DRUG MISUSE [None]
